FAERS Safety Report 13849922 (Version 1)
Quarter: 2017Q3

REPORT INFORMATION
  Report Type: Spontaneous
  Country: US (occurrence: US)
  Receive Date: 20170809
  Receipt Date: 20170809
  Transmission Date: 20171127
  Serious: No
  Sender: FDA-Public Use
  Company Number: US-009507513-1708USA002242

PATIENT
  Age: 29 Year
  Sex: Female
  Weight: 57.14 kg

DRUGS (1)
  1. NEXPLANON [Suspect]
     Active Substance: ETONOGESTREL
     Indication: CONTRACEPTION
     Dosage: DOSE/FREQUENCY: 1 ROD EVERY 3 YEARS
     Route: 059
     Dates: start: 20170623, end: 20170801

REACTIONS (2)
  - Implant site discharge [Unknown]
  - Implant site pain [Unknown]

NARRATIVE: CASE EVENT DATE: 20170710
